FAERS Safety Report 6381374-1 (Version None)
Quarter: 2009Q3

REPORT INFORMATION
  Report Type: 
  Country: None (occurrence: None)
  Receive Date: 20090929
  Receipt Date: 20090921
  Transmission Date: 20100115
  Serious: Yes (Other)
  Sender: FDA-Public Use
  Company Number: CA-AMGEN-KDL365356

PATIENT
  Sex: Male
  Weight: 79.5 kg

DRUGS (1)
  1. ENBREL [Suspect]
     Indication: PSORIASIS
     Dates: start: 20070418, end: 20090801

REACTIONS (1)
  - THERAPEUTIC RESPONSE DECREASED [None]
